FAERS Safety Report 5895629-8 (Version None)
Quarter: 2008Q3

REPORT INFORMATION
  Report Type: 
  Country: None (occurrence: None)
  Receive Date: 20080924
  Receipt Date: 20080320
  Transmission Date: 20090109
  Serious: Yes (Other)
  Sender: FDA-Public Use
  Company Number: US-ASTRAZENECA-2006UW22567

PATIENT
  Age: 39 Year
  Sex: Female
  Weight: 77.1 kg

DRUGS (7)
  1. SEROQUEL [Suspect]
     Indication: SCHIZOPHRENIA
     Route: 048
     Dates: start: 20001001, end: 20040101
  2. SEROQUEL [Suspect]
     Indication: DEPRESSION
     Route: 048
     Dates: start: 20001001, end: 20040101
  3. HALDOL [Concomitant]
  4. RISPERDAL [Concomitant]
  5. THORAZINE [Concomitant]
  6. MIRAZAPAM [Concomitant]
  7. XANIX [Concomitant]

REACTIONS (4)
  - BLOOD TRIGLYCERIDES INCREASED [None]
  - HYPERGLYCAEMIA [None]
  - OBESITY [None]
  - PANCREATITIS [None]
